FAERS Safety Report 4976233-2 (Version None)
Quarter: 2006Q2

REPORT INFORMATION
  Report Type: 
  Country: None (occurrence: None)
  Receive Date: 20060419
  Receipt Date: 20060410
  Transmission Date: 20061013
  Serious: Yes (Other)
  Sender: FDA-Public Use
  Company Number: GB-JNJFOC-20060402516

PATIENT
  Age: 78 Year
  Sex: Male
  Weight: 73 kg

DRUGS (3)
  1. TRAMADOL HCL [Suspect]
     Indication: PROCEDURAL PAIN
     Route: 048
  2. PARACETAMOL [Concomitant]
     Dosage: DOSE REDUCED, ONCE HOME
     Route: 048
  3. PARACETAMOL [Concomitant]
     Indication: PROCEDURAL PAIN
     Route: 048

REACTIONS (5)
  - ANXIETY [None]
  - CONSTIPATION [None]
  - DEPRESSION [None]
  - DIARRHOEA [None]
  - RESTLESSNESS [None]
